FAERS Safety Report 14837092 (Version 1)
Quarter: 2018Q2

REPORT INFORMATION
  Report Type: Spontaneous
  Country: FR (occurrence: FR)
  Receive Date: 20180502
  Receipt Date: 20180502
  Transmission Date: 20180711
  Serious: Yes (Other)
  Sender: FDA-Public Use
  Company Number: FR-MERCK KGAA-2046998

PATIENT
  Age: 50 Year
  Sex: Female

DRUGS (1)
  1. NOVOTHYROX [Suspect]
     Active Substance: LEVOTHYROXINE SODIUM
     Indication: PRODUCT USED FOR UNKNOWN INDICATION
     Dates: start: 201705, end: 2017

REACTIONS (13)
  - Fatigue [Recovered/Resolved]
  - Social avoidant behaviour [Recovered/Resolved]
  - Somnolence [Recovered/Resolved]
  - Gastric ulcer [Recovered/Resolved]
  - Depression [Recovered/Resolved]
  - Hot flush [Recovered/Resolved]
  - Pyrexia [Recovered/Resolved]
  - Dry eye [Not Recovered/Not Resolved]
  - Arthralgia [Recovered/Resolved]
  - Impaired work ability [Recovered/Resolved]
  - Irritability [Recovered/Resolved]
  - Insomnia [Recovered/Resolved]
  - Headache [Recovered/Resolved]

NARRATIVE: CASE EVENT DATE: 2017
